FAERS Safety Report 5068718-8 (Version None)
Quarter: 2006Q3

REPORT INFORMATION
  Report Type: 
  Country: None (occurrence: None)
  Receive Date: 20060802
  Receipt Date: 20060227
  Transmission Date: 20061208
  Serious: No
  Sender: FDA-Public Use
  Company Number: US-BRISTOL-MYERS SQUIBB COMPANY-13296348

PATIENT
  Age: 76 Year
  Sex: Female
  Weight: 100 kg

DRUGS (5)
  1. COUMADIN [Suspect]
     Indication: ARTERIAL THERAPEUTIC PROCEDURE
     Dosage: STARTED 2 YEARS AGO, CURRENTLY TAKES WARFARIN SODIUM 4 MG DAILY EXCEPT FOR WED. WHEN SHE TAKES 6 MG
  2. GLIPIZIDE [Concomitant]
  3. ZOCOR [Concomitant]
  4. ASPIRIN [Concomitant]
  5. MULTI-VITAMIN [Concomitant]

REACTIONS (1)
  - RASH PRURITIC [None]
